FAERS Safety Report 4311123-X (Version None)
Quarter: 2004Q1

REPORT INFORMATION
  Report Type: 
  Country: None (occurrence: None)
  Receive Date: 20040302
  Receipt Date: 20040302
  Transmission Date: 20041129
  Serious: Yes (Hospitalization)
  Sender: FDA-Public Use
  Company Number: None

PATIENT
  Age: 53 Year
  Sex: Female
  Weight: 60.3284 kg

DRUGS (6)
  1. TAMOXIFEN CITRATE [Suspect]
     Indication: BREAST CANCER
     Dosage: 20 MG QD PO
     Route: 048
     Dates: start: 20030813, end: 20040223
  2. ANASTROZOLE 1 MG/PLACEBO [Suspect]
     Dosage: 1 MG PO QD
     Route: 048
     Dates: start: 20030813, end: 20040223
  3. PEPCID [Concomitant]
  4. ASPIRIN [Concomitant]
  5. MULTI-VITAMIN [Concomitant]
  6. LEVAQUIN [Concomitant]

REACTIONS (5)
  - DYSPNOEA [None]
  - INFLAMMATION [None]
  - PNEUMONIA [None]
  - PRODUCTIVE COUGH [None]
  - PYREXIA [None]
